FAERS Safety Report 21654739 (Version 1)
Quarter: 2022Q4

REPORT INFORMATION
  Report Type: Spontaneous
  Country: FR (occurrence: FR)
  Receive Date: 20221129
  Receipt Date: 20221129
  Transmission Date: 20230112
  Serious: No
  Sender: FDA-Public Use
  Company Number: FR-DENTSPLY-2022SCDP000338

PATIENT
  Sex: Female

DRUGS (1)
  1. LIDOCAINE\PRILOCAINE [Suspect]
     Active Substance: LIDOCAINE\PRILOCAINE
     Indication: Application site anaesthesia
     Dosage: 1 DOSAGE FORM TOTAL LIDOCAINE/PRILOCAINE ZENTIVA 5%, SKIN ADHESIVE DRESSING
     Route: 003
     Dates: start: 20221114, end: 20221114

REACTIONS (2)
  - Paraesthesia oral [None]
  - Incorrect route of product administration [Recovered/Resolved]

NARRATIVE: CASE EVENT DATE: 20221114
